FAERS Safety Report 24006968 (Version 1)
Quarter: 2024Q2

REPORT INFORMATION
  Report Type: Spontaneous
  Country: CZ (occurrence: CZ)
  Receive Date: 20240624
  Receipt Date: 20240624
  Transmission Date: 20240716
  Serious: Yes (Other)
  Sender: FDA-Public Use
  Company Number: None

PATIENT
  Age: 69 Year
  Sex: Female
  Weight: 65.5 kg

DRUGS (6)
  1. IBANDRONATE SODIUM [Suspect]
     Active Substance: IBANDRONATE SODIUM
     Indication: Osteoporosis
     Dosage: 150 MILLIGRAM, MONTHLY (1 TABLET PER MONTH ON AN EMPTY STOMACH)
     Route: 048
     Dates: start: 20240516, end: 20240516
  2. GLYPVILO [Concomitant]
     Indication: Type 2 diabetes mellitus
     Dosage: UNK, BID (1-0-1)
     Route: 048
     Dates: start: 20240501
  3. CALCII CARBONICI [Concomitant]
     Indication: Osteoporosis
     Dosage: 500 MILLIGRAM, QD (0-0-1)
     Route: 048
     Dates: start: 20240515, end: 20240531
  4. TORVACARD NEO [Concomitant]
     Indication: Type V hyperlipidaemia
     Dosage: 10 MILLIGRAM, QD (1-0-0)
     Route: 048
     Dates: start: 20220531, end: 20240531
  5. TELMISARTAN [Concomitant]
     Active Substance: TELMISARTAN
     Indication: Hypertension
     Dosage: 40 MILLIGRAM, QD (1-0-0)
     Route: 048
     Dates: start: 20160215, end: 20240531
  6. ASPIRIN\GLYCINE [Concomitant]
     Active Substance: ASPIRIN\GLYCINE
     Indication: Vascular encephalopathy
     Dosage: 100 MILLIGRAM, QD (1-0-0)
     Route: 048
     Dates: start: 20221003, end: 20240531

REACTIONS (5)
  - Dry mouth [Recovering/Resolving]
  - Pain [Recovering/Resolving]
  - Nasal dryness [Recovering/Resolving]
  - Arthralgia [Recovering/Resolving]
  - Muscle spasms [Recovering/Resolving]

NARRATIVE: CASE EVENT DATE: 20240516
